FAERS Safety Report 11387378 (Version 2)
Quarter: 2015Q4

REPORT INFORMATION
  Report Type: Report from Study
  Country: US (occurrence: US)
  Receive Date: 20150817
  Receipt Date: 20151015
  Transmission Date: 20160304
  Serious: Yes (Other)
  Sender: FDA-Public Use
  Company Number: US-BIOGENIDEC-2015BI112767

PATIENT
  Sex: Female

DRUGS (1)
  1. AVONEX [Suspect]
     Active Substance: INTERFERON BETA-1A
     Indication: MULTIPLE SCLEROSIS
     Route: 030
     Dates: start: 20130718, end: 20150609

REACTIONS (5)
  - Complex partial seizures [Recovered/Resolved]
  - Coordination abnormal [Unknown]
  - Drug ineffective [Unknown]
  - Diplopia [Unknown]
  - Influenza like illness [Unknown]
